FAERS Safety Report 22257288 (Version 2)
Quarter: 2023Q2

REPORT INFORMATION
  Report Type: Spontaneous
  Country: SK (occurrence: SK)
  Receive Date: 20230427
  Receipt Date: 20230430
  Transmission Date: 20230721
  Serious: Yes (Hospitalization, Other)
  Sender: FDA-Public Use
  Company Number: SK-MEDO2008-L202304101

PATIENT
  Age: 2 Year
  Sex: Male

DRUGS (6)
  1. GENTAMICIN [Suspect]
     Active Substance: GENTAMICIN
     Indication: Cellulitis orbital
     Dosage: UNK
     Route: 042
     Dates: start: 20190221, end: 20190227
  2. GENTAMICIN [Suspect]
     Active Substance: GENTAMICIN
     Indication: Staphylococcal infection
  3. CEFOTAXIME [Suspect]
     Active Substance: CEFOTAXIME SODIUM
     Indication: Cellulitis orbital
     Dosage: UNK
     Route: 042
     Dates: start: 20190221
  4. CEFOTAXIME [Suspect]
     Active Substance: CEFOTAXIME SODIUM
     Indication: Staphylococcal infection
  5. TOBRAMYCIN [Concomitant]
     Active Substance: TOBRAMYCIN
     Indication: Product used for unknown indication
     Dosage: UNK
     Route: 031
     Dates: start: 201902
  6. UNSPECIFIED INGREDIENT [Concomitant]
     Active Substance: UNSPECIFIED INGREDIENT
     Indication: Thrombosis prophylaxis
     Dosage: 100 IU/KG, UNKNOWN
     Route: 058
     Dates: start: 201902, end: 20190228

REACTIONS (4)
  - Exophthalmos [Recovered/Resolved]
  - Periorbital oedema [Recovered/Resolved]
  - Condition aggravated [Recovered/Resolved]
  - Drug ineffective [Unknown]

NARRATIVE: CASE EVENT DATE: 20190201
